FAERS Safety Report 15549818 (Version 1)
Quarter: 2018Q4

REPORT INFORMATION
  Report Type: Spontaneous
  Country: US (occurrence: US)
  Receive Date: 20181018
  Receipt Date: 20181018
  Transmission Date: 20190205
  Serious: Yes (Hospitalization)
  Sender: FDA-Public Use
  Company Number: None

PATIENT
  Age: 70 Year
  Sex: Male
  Weight: 76.9 kg

DRUGS (3)
  1. VELCADE [Suspect]
     Active Substance: BORTEZOMIB
     Dates: end: 20181005
  2. LENALIDOMIDE (CC-5013) [Suspect]
     Active Substance: LENALIDOMIDE
     Dates: end: 20181008
  3. DEXAMETHASONE. [Suspect]
     Active Substance: DEXAMETHASONE
     Dates: end: 20181006

REACTIONS (25)
  - Asthenia [None]
  - Dizziness [None]
  - Skin abrasion [None]
  - Diarrhoea [None]
  - Platelet count decreased [None]
  - Arthralgia [None]
  - Constipation [None]
  - Oxygen saturation decreased [None]
  - Septic shock [None]
  - Malaise [None]
  - Ear discomfort [None]
  - Headache [None]
  - Haemoglobin decreased [None]
  - Hypovolaemic shock [None]
  - Myalgia [None]
  - Head injury [None]
  - Hypotension [None]
  - Blood magnesium decreased [None]
  - Pain in jaw [None]
  - Fall [None]
  - Rib fracture [None]
  - Gastrointestinal wall thickening [None]
  - Clostridium difficile colitis [None]
  - Faecal volume increased [None]
  - Blood lactic acid increased [None]

NARRATIVE: CASE EVENT DATE: 20181006
